FAERS Safety Report 5509582-X (Version None)
Quarter: 2007Q4

REPORT INFORMATION
  Report Type: 
  Country: None (occurrence: None)
  Receive Date: 20071106
  Receipt Date: 20071019
  Transmission Date: 20080405
  Serious: Yes (Other)
  Sender: FDA-Public Use
  Company Number: 2007EU002370

PATIENT
  Age: 63 Year
  Sex: Male

DRUGS (2)
  1. PROGRAF [Suspect]
     Indication: LIVER TRANSPLANT
     Dosage: /D
  2. CORTICOSTEROIDS [Concomitant]

REACTIONS (7)
  - CIRRHOSIS ALCOHOLIC [None]
  - HEPATIC NEOPLASM MALIGNANT [None]
  - HEPATITIS B [None]
  - HEPATITIS C [None]
  - HIV INFECTION [None]
  - KAPOSI'S SARCOMA [None]
  - LIVER TRANSPLANT REJECTION [None]
